FAERS Safety Report 17300978 (Version 1)
Quarter: 2020Q1

REPORT INFORMATION
  Report Type: Spontaneous
  Country: US (occurrence: US)
  Receive Date: 20200122
  Receipt Date: 20200122
  Transmission Date: 20200409
  Serious: No
  Sender: FDA-Public Use
  Company Number: US-PFIZER INC-2020028604

PATIENT
  Sex: Female

DRUGS (1)
  1. ALPRAZOLAM. [Suspect]
     Active Substance: ALPRAZOLAM
     Indication: INSOMNIA
     Dosage: 0.25 MG, 1X/DAY,(0.25MG AT BEDTIME)
     Dates: start: 20191116

REACTIONS (10)
  - Disturbance in attention [Unknown]
  - Memory impairment [Unknown]
  - Anxiety [Unknown]
  - Personality change [Unknown]
  - Off label use [Unknown]
  - Irritability [Unknown]
  - Paranoia [Unknown]
  - Headache [Unknown]
  - Intentional product use issue [Unknown]
  - Product use in unapproved indication [Unknown]

NARRATIVE: CASE EVENT DATE: 20191116
